FAERS Safety Report 17044148 (Version 1)
Quarter: 2019Q4

REPORT INFORMATION
  Report Type: Spontaneous
  Country: JP (occurrence: JP)
  Receive Date: 20191118
  Receipt Date: 20191118
  Transmission Date: 20200122
  Serious: Yes (Death)
  Sender: FDA-Public Use
  Company Number: JP-BAYER-2019-204672

PATIENT
  Age: 72 Year
  Sex: Male

DRUGS (1)
  1. NEXAVAR [Suspect]
     Active Substance: SORAFENIB
     Indication: HEPATOCELLULAR CARCINOMA
     Dosage: UNK
     Route: 048
     Dates: start: 2015, end: 2016

REACTIONS (6)
  - Malaise [None]
  - Taste disorder [None]
  - Blood bilirubin increased [None]
  - Alanine aminotransferase increased [None]
  - Death [Fatal]
  - Aspartate aminotransferase increased [None]
